FAERS Safety Report 6144071-3 (Version None)
Quarter: 2009Q2

REPORT INFORMATION
  Report Type: 
  Country: None (occurrence: None)
  Receive Date: 20090406
  Receipt Date: 20090330
  Transmission Date: 20091009
  Serious: Yes (Other)
  Sender: FDA-Public Use
  Company Number: US-ASTRAZENECA-2009UW08021

PATIENT
  Age: 59 Year
  Sex: Female
  Weight: 111.1 kg

DRUGS (3)
  1. ARIMIDEX [Suspect]
     Indication: BREAST CANCER
     Route: 048
     Dates: start: 20041201, end: 20081215
  2. ALEVE [Concomitant]
  3. LIPITOR [Concomitant]

REACTIONS (8)
  - ARTHRALGIA [None]
  - EYE SWELLING [None]
  - FACIAL PAIN [None]
  - OEDEMA MOUTH [None]
  - OEDEMA PERIPHERAL [None]
  - PAIN IN EXTREMITY [None]
  - SENSITIVITY OF TEETH [None]
  - SWELLING FACE [None]
